FAERS Safety Report 19189963 (Version 6)
Quarter: 2025Q2

REPORT INFORMATION
  Report Type: Spontaneous
  Country: US (occurrence: US)
  Receive Date: 20210428
  Receipt Date: 20250409
  Transmission Date: 20250717
  Serious: No
  Sender: PFIZER
  Company Number: US-PFIZER INC-2021262084

PATIENT
  Age: 62 Year
  Sex: Female
  Weight: 89.81 kg

DRUGS (3)
  1. PREMARIN [Suspect]
     Active Substance: ESTROGENS, CONJUGATED
     Indication: Vaginal disorder
     Route: 067
  2. PREMARIN [Suspect]
     Active Substance: ESTROGENS, CONJUGATED
     Indication: Vulvovaginal erythema
  3. PREMARIN [Suspect]
     Active Substance: ESTROGENS, CONJUGATED
     Indication: Vulvovaginal pain

REACTIONS (5)
  - Hypertension [Unknown]
  - Off label use [Unknown]
  - Expired product administered [Unknown]
  - Product dose omission issue [Unknown]
  - Product supply issue [Unknown]

NARRATIVE: CASE EVENT DATE: 20201201
